FAERS Safety Report 24055279 (Version 4)
Quarter: 2025Q1

REPORT INFORMATION
  Report Type: Spontaneous
  Country: JP (occurrence: JP)
  Receive Date: 20240705
  Receipt Date: 20250204
  Transmission Date: 20250409
  Serious: Yes (Other)
  Sender: BRISTOL-MYERS SQUIBB COMPANY
  Company Number: JP-BRISTOL-MYERS SQUIBB COMPANY-2024-105595

PATIENT
  Age: 79 Year
  Sex: Male

DRUGS (2)
  1. YERVOY [Suspect]
     Active Substance: IPILIMUMAB
     Indication: Lung adenocarcinoma
     Route: 041
     Dates: end: 202204
  2. OPDIVO [Suspect]
     Active Substance: NIVOLUMAB
     Indication: Lung adenocarcinoma
     Route: 041
     Dates: end: 202204

REACTIONS (4)
  - Immune thrombocytopenia [Recovering/Resolving]
  - White blood cell count decreased [Not Recovered/Not Resolved]
  - Neutrophil count decreased [Not Recovered/Not Resolved]
  - Plasma cell myeloma [Recovering/Resolving]

NARRATIVE: CASE EVENT DATE: 20220401
